FAERS Safety Report 6817685-2 (Version None)
Quarter: 2010Q3

REPORT INFORMATION
  Report Type: 
  Country: None (occurrence: None)
  Receive Date: 20100706
  Receipt Date: 20100624
  Transmission Date: 20110219
  Serious: Yes (Other)
  Sender: FDA-Public Use
  Company Number: US-PFIZER INC-2010079721

PATIENT
  Sex: Female
  Weight: 79.365 kg

DRUGS (3)
  1. NIFEDIPINE [Suspect]
     Indication: HYPERTENSION
     Dosage: 30 MG, DAILY
     Route: 048
  2. NIFEDIPINE [Suspect]
     Dosage: 60 MG, DAILY
     Dates: end: 20100618
  3. ATENOLOL [Suspect]
     Indication: CEREBROVASCULAR ACCIDENT PROPHYLAXIS
     Dosage: 30 MG, DAILY
     Route: 048

REACTIONS (4)
  - BLOOD PRESSURE INCREASED [None]
  - FATIGUE [None]
  - NODULE [None]
  - OEDEMA PERIPHERAL [None]
